FAERS Safety Report 20491478 (Version 1)
Quarter: 2022Q1

REPORT INFORMATION
  Report Type: Spontaneous
  Country: TR (occurrence: TR)
  Receive Date: 20220218
  Receipt Date: 20220218
  Transmission Date: 20220423
  Serious: Yes (Death)
  Sender: FDA-Public Use
  Company Number: TR-PFIZER INC-202200224113

PATIENT
  Age: 52 Year
  Sex: Male

DRUGS (4)
  1. METHYLPREDNISOLONE ACETATE [Suspect]
     Active Substance: METHYLPREDNISOLONE ACETATE
     Indication: Cytokine storm
     Dosage: 250 MG, DAILY FOR 3 DAYS
  2. METHYLPREDNISOLONE ACETATE [Suspect]
     Active Substance: METHYLPREDNISOLONE ACETATE
     Dosage: 40 MG, DAILY
  3. ANAKINRA [Suspect]
     Active Substance: ANAKINRA
     Indication: Cytokine storm
     Dosage: 400 MG, DAILY
     Route: 042
  4. ANAKINRA [Suspect]
     Active Substance: ANAKINRA
     Dosage: 800 MG DAILY

REACTIONS (2)
  - Drug ineffective for unapproved indication [Fatal]
  - Off label use [Unknown]
